FAERS Safety Report 8212111-3 (Version None)
Quarter: 2012Q1

REPORT INFORMATION
  Report Type: 
  Country: None (occurrence: None)
  Receive Date: 20120315
  Receipt Date: 20120302
  Transmission Date: 20120608
  Serious: Yes (Hospitalization, Other)
  Sender: FDA-Public Use
  Company Number: US-ROCHE-1045457

PATIENT
  Sex: Female

DRUGS (1)
  1. VALIUM [Suspect]
     Indication: VERTIGO POSITIONAL
     Dates: start: 20110801, end: 20110916

REACTIONS (1)
  - MENTAL IMPAIRMENT [None]
